FAERS Safety Report 13938411 (Version 2)
Quarter: 2018Q1

REPORT INFORMATION
  Report Type: Spontaneous
  Country: US (occurrence: US)
  Receive Date: 20170905
  Receipt Date: 20180122
  Transmission Date: 20180508
  Serious: Yes (Hospitalization)
  Sender: FDA-Public Use
  Company Number: US-DSJP-DSU-2017-134449

PATIENT

DRUGS (3)
  1. BENICAR HCT [Suspect]
     Active Substance: HYDROCHLOROTHIAZIDE\OLMESARTAN MEDOXOMIL
     Dosage: 40-25MG
     Dates: start: 20060908, end: 20091115
  2. BENICAR HCT [Suspect]
     Active Substance: HYDROCHLOROTHIAZIDE\OLMESARTAN MEDOXOMIL
     Indication: PRODUCT USED FOR UNKNOWN INDICATION
     Dosage: 40-12.5MG
     Dates: start: 20060908, end: 20091115
  3. BENICAR [Suspect]
     Active Substance: OLMESARTAN MEDOXOMIL
     Indication: PRODUCT USED FOR UNKNOWN INDICATION
     Dosage: 20 MG, QD
     Route: 048
     Dates: start: 20060908, end: 20091115

REACTIONS (5)
  - Sprue-like enteropathy [Recovering/Resolving]
  - Diverticulum intestinal [Unknown]
  - Acute kidney injury [Recovering/Resolving]
  - Haemorrhoids [Unknown]
  - Anaemia [Unknown]

NARRATIVE: CASE EVENT DATE: 200911
